FAERS Safety Report 17095036 (Version 1)
Quarter: 2019Q4

REPORT INFORMATION
  Report Type: Spontaneous
  Country: SE (occurrence: SE)
  Receive Date: 20191130
  Receipt Date: 20191130
  Transmission Date: 20200122
  Serious: Yes (Hospitalization)
  Sender: FDA-Public Use
  Company Number: SE-ACCORD-162789

PATIENT
  Sex: Female

DRUGS (2)
  1. ESCITALOPRAM [Suspect]
     Active Substance: ESCITALOPRAM OXALATE
     Dosage: 10X10 MG
     Route: 048
     Dates: start: 20180410, end: 20180410
  2. LERGIGAN (PROMETHAZINE HYDROCHLORIDE) [Suspect]
     Active Substance: PROMETHAZINE HYDROCHLORIDE
     Dosage: 30 ST
     Route: 048
     Dates: start: 20180410, end: 20180410

REACTIONS (6)
  - Confusional state [Unknown]
  - Tachycardia [Unknown]
  - Intentional self-injury [Unknown]
  - Akathisia [Unknown]
  - Muscle spasms [Unknown]
  - Intentional overdose [Unknown]

NARRATIVE: CASE EVENT DATE: 20180410
